FAERS Safety Report 6283520-7 (Version None)
Quarter: 2009Q3

REPORT INFORMATION
  Report Type: 
  Country: None (occurrence: None)
  Receive Date: 20090721
  Receipt Date: 20090721
  Transmission Date: 20100115
  Serious: No
  Sender: FDA-Public Use
  Company Number: None

PATIENT
  Sex: Male
  Weight: 95.2554 kg

DRUGS (1)
  1. VYTORIN [Suspect]
     Dosage: 10/20 1/DAY PO
     Route: 048
     Dates: start: 20041029, end: 20090720

REACTIONS (1)
  - CHRONIC LYMPHOCYTIC LEUKAEMIA [None]
